FAERS Safety Report 18539042 (Version 3)
Quarter: 2021Q3

REPORT INFORMATION
  Report Type: Other
  Country: US (occurrence: US)
  Receive Date: 20201124
  Receipt Date: 20210827
  Transmission Date: 20211014
  Serious: No
  Sender: FDA-Public Use
  Company Number: US-APOTEX-2020AP022187

PATIENT
  Sex: Female
  Weight: 68 kg

DRUGS (6)
  1. MYCOPHENOLATE [Suspect]
     Active Substance: MYCOPHENOLIC ACID
     Dosage: 1000 MILLIGRAM, BID
     Route: 048
     Dates: start: 202001, end: 202009
  2. MYCOPHENOLATE [Suspect]
     Active Substance: MYCOPHENOLIC ACID
     Indication: SYSTEMIC LUPUS ERYTHEMATOSUS
     Dosage: 500 MILLIGRAM DAILY
     Route: 048
     Dates: start: 202001, end: 202009
  3. NIFEDIPINE XL [Concomitant]
     Active Substance: NIFEDIPINE
     Indication: HYPERTENSION
     Dosage: 30 MILLIGRAM DAILY
     Route: 065
     Dates: start: 20201012
  4. PLAQUENIL [Concomitant]
     Active Substance: HYDROXYCHLOROQUINE SULFATE
     Indication: SYSTEMIC LUPUS ERYTHEMATOSUS
     Dosage: UNK
     Route: 065
     Dates: start: 202010
  5. HYDROXYCHLOROQUINE [Concomitant]
     Active Substance: HYDROXYCHLOROQUINE
     Indication: SYSTEMIC LUPUS ERYTHEMATOSUS
     Dosage: 200 MILLIGRAM, BID
     Route: 065
     Dates: start: 202001
  6. PREDNISONE. [Concomitant]
     Active Substance: PREDNISONE
     Indication: SYSTEMIC LUPUS ERYTHEMATOSUS
     Dosage: 5 MILLIGRAM, BID
     Route: 065
     Dates: start: 202001

REACTIONS (1)
  - Maternal exposure during pregnancy [Unknown]
